FAERS Safety Report 6015330-X (Version None)
Quarter: 2008Q4

REPORT INFORMATION
  Report Type: 
  Country: None (occurrence: None)
  Receive Date: 20081222
  Receipt Date: 20081210
  Transmission Date: 20090506
  Serious: Yes (Other)
  Sender: FDA-Public Use
  Company Number: US-PFIZER INC-2008099998

PATIENT
  Sex: Female

DRUGS (4)
  1. ADRIAMYCIN PFS [Suspect]
     Indication: BREAST CANCER
     Dosage: CYCLIC
     Route: 042
     Dates: start: 20080805
  2. TAXOTERE [Suspect]
     Indication: BREAST CANCER
     Dates: start: 20080805
  3. CYTOXAN [Suspect]
     Indication: BREAST CANCER
  4. DIOVANE [Concomitant]

REACTIONS (1)
  - PNEUMONITIS [None]
